FAERS Safety Report 10725857 (Version 2)
Quarter: 2015Q1

REPORT INFORMATION
  Report Type: Report from Study
  Country: CO (occurrence: CO)
  Receive Date: 20150121
  Receipt Date: 20150204
  Transmission Date: 20150721
  Serious: Yes (Other)
  Sender: FDA-Public Use
  Company Number: CO-ROCHE-1523936

PATIENT
  Sex: Male
  Weight: 75 kg

DRUGS (6)
  1. ACETAMINOPHEN. [Concomitant]
     Active Substance: ACETAMINOPHEN
  2. LUCENTIS [Suspect]
     Active Substance: RANIBIZUMAB
     Indication: RETINAL DETACHMENT
     Dosage: RIGHT EYE
     Route: 050
     Dates: start: 20140101
  3. LUCENTIS [Suspect]
     Active Substance: RANIBIZUMAB
     Dosage: RIGHT EYE
     Route: 050
     Dates: start: 20140502
  4. LUCENTIS [Suspect]
     Active Substance: RANIBIZUMAB
     Dosage: RIGHT EYE
     Route: 050
     Dates: start: 20140803
  5. LUCENTIS [Suspect]
     Active Substance: RANIBIZUMAB
     Dosage: LEFT EYE
     Route: 050
     Dates: start: 201401
  6. LOSARTAN [Concomitant]
     Active Substance: LOSARTAN

REACTIONS (5)
  - Blood pressure increased [Unknown]
  - Cataract [Unknown]
  - Visual impairment [Unknown]
  - Off label use [Unknown]
  - Visual acuity reduced [Unknown]
